FAERS Safety Report 6788326-8 (Version None)
Quarter: 2010Q2

REPORT INFORMATION
  Report Type: 
  Country: None (occurrence: None)
  Receive Date: 20100623
  Receipt Date: 20080227
  Transmission Date: 20101027
  Serious: No
  Sender: FDA-Public Use
  Company Number: US-PFIZER INC-2008018239

PATIENT
  Sex: Male

DRUGS (1)
  1. NIFEDIPINE [Suspect]

REACTIONS (2)
  - DIZZINESS [None]
  - HEADACHE [None]
